FAERS Safety Report 4568423-8 (Version None)
Quarter: 2005Q1

REPORT INFORMATION
  Report Type: 
  Country: None (occurrence: None)
  Receive Date: 20050131
  Receipt Date: 20050119
  Transmission Date: 20050727
  Serious: Yes (Hospitalization)
  Sender: FDA-Public Use
  Company Number: 2005016561

PATIENT
  Age: 65 Year
  Sex: Female

DRUGS (8)
  1. TAHOR (ATORVASTATIN) [Suspect]
     Indication: ILL-DEFINED DISORDER
     Dosage: ORAL
     Route: 048
  2. ETANOLAMINE ACETYLLEUCINATE (ETHANOLAMINE ACETYLLEUCINATE) [Suspect]
     Indication: VERTIGO
     Dosage: ORAL
     Route: 048
     Dates: start: 20041207, end: 20041223
  3. VERAPAMIL [Suspect]
     Dosage: (240 MG ) ORAL
     Route: 048
  4. HYZAAR [Suspect]
     Dosage: ORAL
     Route: 048
  5. GLICLAZIDE (GLICLAZIDE) [Suspect]
     Dosage: ORAL
     Route: 048
  6. TERBINAFINE HCL [Suspect]
     Indication: ONYCHOMYCOSIS
     Dosage: 250 MG (250 MG 1 IN 1D ORAL)
     Route: 048
     Dates: start: 20041207, end: 20041220
  7. DIHYDROERGOTAMINE MESYLATE (DIHYDROERGOTAMINE MESILATE) [Concomitant]
  8. TRIMETAZIDINE HYDROCHLORIDE (TRIMETAZIDINE HYDROCHLORIDE) [Concomitant]

REACTIONS (3)
  - ACUTE GENERALISED EXANTHEMATOUS PUSTULOSIS [None]
  - LEUKOCYTOSIS [None]
  - URTICARIA [None]
